FAERS Safety Report 8119492-X (Version None)
Quarter: 2012Q1

REPORT INFORMATION
  Report Type: 
  Country: None (occurrence: None)
  Receive Date: 20120203
  Receipt Date: 20120131
  Transmission Date: 20120608
  Serious: Yes (Other)
  Sender: FDA-Public Use
  Company Number: DSA_48715_2012

PATIENT
  Sex: Male
  Weight: 117.4816 kg

DRUGS (6)
  1. LEXAPRO [Concomitant]
  2. BENZTROPINE MESYLATE [Suspect]
     Indication: PRODUCT USED FOR UNKNOWN INDICATION
     Dosage: (DF), (0.5 MG TID, INCREASED DOSE)
     Dates: start: 20111221
  3. BENZTROPINE MESYLATE [Suspect]
     Indication: PRODUCT USED FOR UNKNOWN INDICATION
     Dosage: (DF), (0.5 MG TID, INCREASED DOSE)
     Dates: end: 20111220
  4. XENAZINE [Suspect]
     Indication: HUNTINGTON'S DISEASE
     Dosage: (12.5 MG TID ORAL), (12.5 MG BID ORAL), (12.5 MG BID ORAL)
     Route: 048
     Dates: start: 20111221, end: 20120103
  5. XENAZINE [Suspect]
     Indication: HUNTINGTON'S DISEASE
     Dosage: (12.5 MG TID ORAL), (12.5 MG BID ORAL), (12.5 MG BID ORAL)
     Route: 048
     Dates: start: 20111027, end: 20111220
  6. XENAZINE [Suspect]
     Indication: HUNTINGTON'S DISEASE
     Dosage: (12.5 MG TID ORAL), (12.5 MG BID ORAL), (12.5 MG BID ORAL)
     Route: 048
     Dates: start: 20120104

REACTIONS (6)
  - DRY MOUTH [None]
  - LOSS OF CONSCIOUSNESS [None]
  - TARDIVE DYSKINESIA [None]
  - DIZZINESS [None]
  - DIARRHOEA [None]
  - VOMITING [None]
